FAERS Safety Report 10227291 (Version 1)
Quarter: 2014Q2

REPORT INFORMATION
  Report Type: Spontaneous
  Country: US (occurrence: US)
  Receive Date: 20140610
  Receipt Date: 20140610
  Transmission Date: 20141212
  Serious: Yes (Other)
  Sender: FDA-Public Use
  Company Number: US-ELI_LILLY_AND_COMPANY-US201405010404

PATIENT
  Sex: Female

DRUGS (2)
  1. HUMULIN 30% REGULAR, 70% NPH [Suspect]
     Indication: TYPE 1 DIABETES MELLITUS
     Dosage: 7 U, TID
     Route: 065
  2. HUMULIN 30% REGULAR, 70% NPH [Suspect]
     Dosage: 12 U, TID
     Route: 065

REACTIONS (1)
  - Blood glucose increased [Not Recovered/Not Resolved]
